FAERS Safety Report 15038180 (Version 3)
Quarter: 2018Q3

REPORT INFORMATION
  Report Type: Spontaneous
  Country: DE (occurrence: DE)
  Receive Date: 20180620
  Receipt Date: 20180710
  Transmission Date: 20181010
  Serious: Yes (Death, Hospitalization, Other)
  Sender: FDA-Public Use
  Company Number: DE-009507513-1806DEU006382

PATIENT
  Sex: Male
  Weight: 118 kg

DRUGS (3)
  1. KEYTRUDA [Suspect]
     Active Substance: PEMBROLIZUMAB
     Dosage: 3X200 MG/30 MINS
     Route: 042
     Dates: start: 20180226, end: 20180409
  2. KEYTRUDA [Suspect]
     Active Substance: PEMBROLIZUMAB
     Indication: BLADDER TRANSITIONAL CELL CARCINOMA STAGE II
     Dosage: 3X200 MG/30 MINS
     Route: 042
     Dates: start: 20180226, end: 20180409
  3. KEYTRUDA [Suspect]
     Active Substance: PEMBROLIZUMAB
     Dosage: 3X200 MG/30 MINS
     Route: 042
     Dates: start: 20180226, end: 20180409

REACTIONS (16)
  - Renal failure [Fatal]
  - Sepsis [Unknown]
  - Appendicitis [Unknown]
  - Cellulitis [Unknown]
  - Portal hypertension [Unknown]
  - Hypertension [Unknown]
  - Gastric disorder [Unknown]
  - Oesophageal varices haemorrhage [Unknown]
  - Portal vein thrombosis [Unknown]
  - Lung neoplasm malignant [Unknown]
  - Obesity [Unknown]
  - Malignant neoplasm progression [Fatal]
  - Hepatic failure [Fatal]
  - Coronary artery disease [Unknown]
  - Gastritis [Unknown]
  - Product use in unapproved indication [Unknown]

NARRATIVE: CASE EVENT DATE: 2018
